FAERS Safety Report 6137446-X (Version None)
Quarter: 2009Q1

REPORT INFORMATION
  Report Type: 
  Country: None (occurrence: None)
  Receive Date: 20090326
  Receipt Date: 20090312
  Transmission Date: 20090719
  Serious: No
  Sender: FDA-Public Use
  Company Number: 8043927

PATIENT
  Sex: Male

DRUGS (1)
  1. KEPPRA [Suspect]
     Indication: CONVULSION
     Dosage: 5250 MG /D
     Dates: start: 20040101

REACTIONS (4)
  - ABNORMAL FAECES [None]
  - HAEMATOCHEZIA [None]
  - SEXUAL DYSFUNCTION [None]
  - WRONG TECHNIQUE IN DRUG USAGE PROCESS [None]
